FAERS Safety Report 4355897-0 (Version None)
Quarter: 2004Q2

REPORT INFORMATION
  Report Type: 
  Country: None (occurrence: None)
  Receive Date: 20040505
  Receipt Date: 20040426
  Transmission Date: 20050107
  Serious: Yes (Hospitalization, Other)
  Sender: FDA-Public Use
  Company Number: FRWYE724426APR04

PATIENT
  Age: 49 Year
  Sex: Male

DRUGS (6)
  1. OXAZEPAM [Suspect]
     Dosage: 225 MG 1X PER 1 DAY
     Route: 048
     Dates: start: 20030815, end: 20040312
  2. AMITRIPTYLINE HYDROCHLORIDE [Suspect]
     Route: 048
     Dates: start: 20030815, end: 20040312
  3. PRAZEPAM [Suspect]
     Dosage: 20 MG 1X PER 1 DAY
     Route: 048
     Dates: start: 20031115, end: 20040312
  4. SOLIAN (AMISULPRIDE) [Concomitant]
  5. IXEL (MILNACIPRAN) [Concomitant]
  6. TIAPRIDAL (TIAPRIDE) [Concomitant]

REACTIONS (2)
  - DRUG INTERACTION [None]
  - HEPATITIS [None]
